FAERS Safety Report 6197721-X (Version None)
Quarter: 2009Q2

REPORT INFORMATION
  Report Type: 
  Country: None (occurrence: None)
  Receive Date: 20090521
  Receipt Date: 20090519
  Transmission Date: 20091009
  Serious: Yes (Death)
  Sender: FDA-Public Use
  Company Number: JP-AVENTIS-200910899JP

PATIENT
  Age: 79 Year
  Sex: Male
  Weight: 53 kg

DRUGS (10)
  1. TAXOTERE [Suspect]
     Indication: NON-SMALL CELL LUNG CANCER
     Route: 041
     Dates: start: 20090107, end: 20090305
  2. RANDA [Suspect]
     Indication: NON-SMALL CELL LUNG CANCER
     Route: 041
     Dates: start: 20090107, end: 20090305
  3. KYTRIL                             /01178101/ [Concomitant]
     Route: 041
     Dates: start: 20090107, end: 20090305
  4. DECADRON [Concomitant]
     Route: 041
     Dates: start: 20090107, end: 20090305
  5. LASIX [Concomitant]
     Indication: RENAL DISORDER
     Route: 041
     Dates: start: 20090107, end: 20090305
  6. PRIMPERAN                          /00041901/ [Concomitant]
     Indication: VOMITING
     Route: 041
     Dates: start: 20090309, end: 20090309
  7. ARTIST [Concomitant]
     Indication: HYPERTENSION
     Route: 048
     Dates: start: 20070101, end: 20090310
  8. MICARDIS [Concomitant]
     Indication: HYPERTENSION
     Route: 048
     Dates: start: 20070101, end: 20090310
  9. MAGLAX [Concomitant]
     Indication: CONSTIPATION
     Route: 048
     Dates: start: 20090119
  10. MYSLEE [Concomitant]
     Indication: INSOMNIA
     Route: 048
     Dates: start: 20090119

REACTIONS (3)
  - ANOREXIA [None]
  - NAUSEA [None]
  - SHOCK [None]
